FAERS Safety Report 20055182 (Version 1)
Quarter: 2021Q4

REPORT INFORMATION
  Report Type: Spontaneous
  Country: BR (occurrence: BR)
  Receive Date: 20211110
  Receipt Date: 20211110
  Transmission Date: 20220304
  Serious: Yes (Other)
  Sender: FDA-Public Use
  Company Number: BR-009507513-2111BRA003029

PATIENT
  Age: 64 Year
  Sex: Female
  Weight: 63 kg

DRUGS (5)
  1. EMEND (FOSAPREPITANT DIMEGLUMINE) [Suspect]
     Active Substance: FOSAPREPITANT DIMEGLUMINE
     Indication: Prophylaxis of nausea and vomiting
     Dosage: 150 MILLIGRAM (MG) 1H BEFORE CHEMOTHERAPY TREATMENT
     Route: 042
     Dates: start: 20200828, end: 20201009
  2. HERCEPTIN [Suspect]
     Active Substance: TRASTUZUMAB
     Dosage: 403 MILLIGRAM
  3. PERJETA [Suspect]
     Active Substance: PERTUZUMAB
     Dosage: 420 MILLIGRAM
  4. DOCETAXEL [Suspect]
     Active Substance: DOCETAXEL
     Dosage: 124 MILLIGRAM
  5. CARBOPLATIN [Suspect]
     Active Substance: CARBOPLATIN
     Dosage: 512 MILLIGRAM

REACTIONS (1)
  - Chemical phlebitis [Not Recovered/Not Resolved]

NARRATIVE: CASE EVENT DATE: 20201009
